FAERS Safety Report 6197287-4 (Version None)
Quarter: 2009Q2

REPORT INFORMATION
  Report Type: 
  Country: None (occurrence: None)
  Receive Date: 20090521
  Receipt Date: 20090518
  Transmission Date: 20091009
  Serious: Yes (Other)
  Sender: FDA-Public Use
  Company Number: US-JNJFOC-20090504399

PATIENT
  Sex: Male
  Weight: 79.38 kg

DRUGS (2)
  1. FENTANYL TRANSDERMAL SYSTEM [Suspect]
     Indication: ABDOMINAL PAIN UPPER
     Route: 062
  2. NOVOLOG [Concomitant]
     Indication: DIABETES MELLITUS
     Dosage: 70/30
     Route: 058

REACTIONS (1)
  - PANCREATITIS [None]
